FAERS Safety Report 7321304-9 (Version None)
Quarter: 2011Q1

REPORT INFORMATION
  Report Type: 
  Country: None (occurrence: None)
  Receive Date: 20110228
  Receipt Date: 20100504
  Transmission Date: 20110831
  Serious: Yes (Other)
  Sender: FDA-Public Use
  Company Number: US-PFIZER INC-2010056855

PATIENT
  Sex: Female

DRUGS (3)
  1. QUINAPRIL [Concomitant]
     Indication: HYPERTENSION
     Dosage: UNK
  2. GEODON [Suspect]
     Indication: ANXIETY
     Dosage: 40 MG, 2X/DAY
     Route: 048
  3. GEODON [Suspect]
     Indication: DEPRESSION

REACTIONS (3)
  - ANXIETY [None]
  - DRY SKIN [None]
  - ALOPECIA [None]
